FAERS Safety Report 7373029-1 (Version None)
Quarter: 2011Q1

REPORT INFORMATION
  Report Type: 
  Country: None (occurrence: None)
  Receive Date: 20110324
  Receipt Date: 20110315
  Transmission Date: 20110831
  Serious: Yes (Death, Hospitalization)
  Sender: FDA-Public Use
  Company Number: BR-GENZYME-CLOF-1001493

PATIENT
  Sex: Male
  Weight: 15 kg

DRUGS (11)
  1. AMIKACIN [Concomitant]
     Indication: PYREXIA
     Dosage: UNK
     Dates: start: 20110301, end: 20110314
  2. VANCOMYCIN [Concomitant]
     Indication: PYREXIA
     Dosage: 150 MG, UNK
     Route: 065
     Dates: start: 20110307, end: 20110314
  3. CYCLOPHOSPHAMIDE [Suspect]
     Indication: ACUTE LYMPHOCYTIC LEUKAEMIA
     Dosage: 250 MG, QDX5
     Route: 042
     Dates: start: 20110224, end: 20110228
  4. CEFEPIME [Concomitant]
     Indication: NEUTROPENIA
  5. AMIKACIN [Concomitant]
     Indication: NEUTROPENIA
  6. CEFEPIME [Concomitant]
     Indication: PYREXIA
     Dosage: 750 MG, UNK
     Route: 042
     Dates: start: 20110301, end: 20110314
  7. ITRACONAZOLE [Concomitant]
     Indication: PROPHYLAXIS
     Dosage: 50 MG, QD
     Route: 048
     Dates: start: 20110301, end: 20110301
  8. ETOPOSIDE [Suspect]
     Indication: ACUTE LYMPHOCYTIC LEUKAEMIA
     Dosage: 100 MG, QDX5
     Route: 042
     Dates: start: 20110224, end: 20110228
  9. FILGRASTIM [Concomitant]
     Indication: BONE MARROW FAILURE
     Dosage: 300 MCG, QD
     Route: 065
     Dates: start: 20110301, end: 20110314
  10. CLOLAR [Suspect]
     Indication: ACUTE LYMPHOCYTIC LEUKAEMIA
     Dosage: 25 MG, QDX5
     Route: 042
     Dates: start: 20110224, end: 20110228
  11. FEBRAX [Concomitant]
     Indication: PROPHYLAXIS
     Dosage: 5 ML, UNK
     Route: 065
     Dates: start: 20110301, end: 20110314

REACTIONS (4)
  - MULTI-ORGAN FAILURE [None]
  - RESPIRATORY TRACT HAEMORRHAGE [None]
  - GASTROINTESTINAL HAEMORRHAGE [None]
  - THROMBOCYTOPENIA [None]
